FAERS Safety Report 8381994-9 (Version None)
Quarter: 2012Q2

REPORT INFORMATION
  Report Type: 
  Country: None (occurrence: None)
  Receive Date: 20120524
  Receipt Date: 20120510
  Transmission Date: 20120825
  Serious: No
  Sender: FDA-Public Use
  Company Number: US-JNJFOC-20120407828

PATIENT
  Sex: Male

DRUGS (21)
  1. LISINOPRIL [Concomitant]
     Route: 048
  2. TRICOR [Concomitant]
     Route: 048
  3. LEVOTHYROXINE SODIUM [Concomitant]
     Route: 048
  4. FENTANYL-100 [Suspect]
     Route: 062
     Dates: start: 20120505, end: 20120508
  5. MELOXICAM [Concomitant]
     Route: 048
  6. CYMBALTA [Concomitant]
  7. FENTANYL-100 [Suspect]
     Route: 062
     Dates: start: 20120404
  8. OXYCONTIN [Concomitant]
     Indication: PAIN
     Route: 048
  9. FENTANYL-100 [Suspect]
     Indication: BACK PAIN
     Route: 062
     Dates: start: 20120405
  10. ALBUTEROL [Concomitant]
     Indication: BRONCHITIS CHRONIC
  11. DIAZEPAM [Concomitant]
     Indication: ANXIETY
     Route: 048
  12. AMLODIPINE BESYLATE [Concomitant]
     Route: 048
  13. ZOLPIDEM [Concomitant]
     Indication: SLEEP DISORDER
     Route: 048
  14. METFORMIN HCL [Concomitant]
     Route: 048
  15. OMEPRAZOLE [Concomitant]
     Route: 048
  16. JANUVIA [Concomitant]
     Route: 048
  17. CELEBREX [Concomitant]
  18. GABAPENTIN [Concomitant]
     Indication: ARTHRALGIA
     Route: 048
  19. TAMSULOSIN HCL [Concomitant]
     Route: 048
  20. GLYBURIDE [Concomitant]
     Route: 048
  21. CYMBALTA [Concomitant]

REACTIONS (5)
  - PRODUCT QUALITY ISSUE [None]
  - DRUG INEFFECTIVE [None]
  - PAIN [None]
  - INAPPROPRIATE SCHEDULE OF DRUG ADMINISTRATION [None]
  - WRONG TECHNIQUE IN DRUG USAGE PROCESS [None]
